FAERS Safety Report 23920378 (Version 1)
Quarter: 2024Q2

REPORT INFORMATION
  Report Type: Spontaneous
  Country: US (occurrence: None)
  Receive Date: 20240530
  Receipt Date: 20240530
  Transmission Date: 20240716
  Serious: No
  Sender: FDA-Public Use
  Company Number: None

PATIENT

DRUGS (1)
  1. EPINEPHRINE\LIDOCAINE [Suspect]
     Active Substance: EPINEPHRINE\LIDOCAINE

REACTIONS (5)
  - Peripheral coldness [None]
  - Atrial fibrillation [None]
  - Hypophagia [None]
  - Dyspnoea [None]
  - Wrong technique in product usage process [None]

NARRATIVE: CASE EVENT DATE: 20231206
